FAERS Safety Report 14539488 (Version 3)
Quarter: 2018Q1

REPORT INFORMATION
  Report Type: Spontaneous
  Country: FR (occurrence: FR)
  Receive Date: 20180216
  Receipt Date: 20180320
  Transmission Date: 20180509
  Serious: Yes (Other)
  Sender: FDA-Public Use
  Company Number: PHHY2018FR023257

PATIENT
  Age: 69 Year
  Sex: Female

DRUGS (2)
  1. ZYKADIA [Suspect]
     Active Substance: CERITINIB
     Indication: NON-SMALL CELL LUNG CANCER
     Dosage: 3 DF, QD
     Route: 048
     Dates: start: 20180119
  2. ZYKADIA [Suspect]
     Active Substance: CERITINIB
     Dosage: 2 DF, UNK
     Route: 048

REACTIONS (8)
  - Gamma-glutamyltransferase increased [Recovering/Resolving]
  - Blood alkaline phosphatase increased [Unknown]
  - Cell death [Recovering/Resolving]
  - Fatigue [Unknown]
  - Blood bilirubin increased [Recovering/Resolving]
  - Transaminases increased [Unknown]
  - Nausea [Unknown]
  - Cholestasis [Unknown]

NARRATIVE: CASE EVENT DATE: 201801
